FAERS Safety Report 17205721 (Version 1)
Quarter: 2019Q4

REPORT INFORMATION
  Report Type: Spontaneous
  Country: CN (occurrence: CN)
  Receive Date: 20191227
  Receipt Date: 20191227
  Transmission Date: 20200122
  Serious: Yes (Hospitalization)
  Sender: FDA-Public Use
  Company Number: CN-JIANGSU HENGRUI MEDICINE CO., LTD.-2078227

PATIENT
  Age: 34 Year
  Sex: Female
  Weight: 70 kg

DRUGS (7)
  1. PROMETHAZINE INJECTION [Concomitant]
     Dates: start: 20170524
  2. DOCETAXEL INJECTION USP, 20 MG/1 ML, 80 MG/4 ML, AND 160 MG/8 ML (20 M [Suspect]
     Active Substance: DOCETAXEL
     Indication: INVASIVE DUCTAL BREAST CARCINOMA
     Route: 041
     Dates: start: 20170525, end: 20170525
  3. AZASETRON INJECTION [Concomitant]
     Dates: start: 20170524
  4. PANTOPRAZOLE FOR INJECTION [Concomitant]
     Dates: start: 20170524
  5. DEXAMETHASONE TABLETS [Concomitant]
     Dates: start: 20170524
  6. HERCEPTIN [Suspect]
     Active Substance: TRASTUZUMAB
     Route: 041
     Dates: start: 20170524, end: 20170524
  7. CIMITIDINE INJECTION [Concomitant]
     Dates: start: 20170524

REACTIONS (1)
  - Traumatic lung injury [Recovering/Resolving]

NARRATIVE: CASE EVENT DATE: 20170526
